FAERS Safety Report 19900191 (Version 6)
Quarter: 2022Q2

REPORT INFORMATION
  Report Type: Spontaneous
  Country: ES (occurrence: ES)
  Receive Date: 20210930
  Receipt Date: 20220425
  Transmission Date: 20220721
  Serious: Yes (Hospitalization)
  Sender: FDA-Public Use
  Company Number: ES-ACCORD-240005

PATIENT
  Age: 69 Year
  Sex: Male
  Weight: 91 kg

DRUGS (26)
  1. OXALIPLATIN [Suspect]
     Active Substance: OXALIPLATIN
     Indication: Diffuse large B-cell lymphoma
     Route: 042
     Dates: start: 20210719, end: 20210719
  2. CYTARABINE [Suspect]
     Active Substance: CYTARABINE
     Indication: Diffuse large B-cell lymphoma
     Dosage: SINGLE
     Route: 042
     Dates: start: 20210720, end: 20210720
  3. EPCORITAMAB [Suspect]
     Active Substance: EPCORITAMAB
     Indication: Diffuse large B-cell lymphoma
     Dosage: PRIMING DOSE: 0.16MG, SINGLE
     Route: 058
     Dates: start: 20210719, end: 20210719
  4. DEXAMETHASONE SODIUM PHOSPHATE [Suspect]
     Active Substance: DEXAMETHASONE SODIUM PHOSPHATE
     Indication: Diffuse large B-cell lymphoma
     Dosage: QD
     Route: 042
     Dates: start: 20210719, end: 20210720
  5. RITUXIMAB [Suspect]
     Active Substance: RITUXIMAB
     Indication: Diffuse large B-cell lymphoma
     Dosage: 1Q3W;
     Route: 042
     Dates: start: 20210719, end: 20210719
  6. DEXCHLORPHENIRAMINE MALEATE [Concomitant]
     Active Substance: DEXCHLORPHENIRAMINE MALEATE
     Dates: start: 20210719, end: 20210719
  7. ACETAMINOPHEN [Concomitant]
     Active Substance: ACETAMINOPHEN
     Dates: start: 20210719, end: 20210719
  8. HYDROCHLOROTHIAZIDE [Concomitant]
     Active Substance: HYDROCHLOROTHIAZIDE
     Dates: start: 20180208
  9. LOSARTAN [Concomitant]
     Active Substance: LOSARTAN
     Dates: start: 20180208
  10. COVID-19 VACCINE [Concomitant]
     Dosage: 1ST DOSE
     Dates: start: 20210616
  11. NSULINA [Concomitant]
     Dates: start: 20210725
  12. POSACONAZOLE [Concomitant]
     Active Substance: POSACONAZOLE
     Dates: start: 20210722
  13. ADENOSINE [Concomitant]
     Active Substance: ADENOSINE
     Dates: start: 20210830, end: 20210830
  14. AMIKACIN [Concomitant]
     Active Substance: AMIKACIN
     Dates: start: 20210826
  15. AMIODARONE [Concomitant]
     Active Substance: AMIODARONE
     Dates: start: 20210830, end: 20210830
  16. CEFTRIAXONE [Concomitant]
     Active Substance: CEFTRIAXONE
     Dates: start: 20210824, end: 20210904
  17. CYCLOPHOSPHAMIDE [Concomitant]
     Active Substance: CYCLOPHOSPHAMIDE
     Dates: start: 20210830, end: 20210830
  18. MEROPENEM [Concomitant]
     Active Substance: MEROPENEM
     Dates: start: 20210829, end: 20210911
  19. METAMIZOLE [Concomitant]
     Active Substance: METAMIZOLE
     Dates: start: 20210823, end: 20210823
  20. METHYLPREDNISOLONE [Concomitant]
     Active Substance: METHYLPREDNISOLONE
     Dates: start: 20210830, end: 20210830
  21. MOVICOL [Concomitant]
     Active Substance: POLYETHYLENE GLYCOL 3350\POTASSIUM CHLORIDE\SODIUM BICARBONATE\SODIUM CHLORIDE
     Dates: start: 20210812, end: 20210812
  22. NOREPINEPHRINE [Concomitant]
     Active Substance: NOREPINEPHRINE
     Dates: start: 20210829, end: 20210830
  23. TAZOBACTAM [Concomitant]
     Active Substance: TAZOBACTAM
     Dates: start: 20210822, end: 20210822
  24. PIPERACILLIN SODIUM [Concomitant]
     Active Substance: PIPERACILLIN SODIUM
     Dates: start: 20210822, end: 20210822
  25. PREGABALIN [Concomitant]
     Active Substance: PREGABALIN
     Dates: start: 20210719
  26. RASBURICASE [Concomitant]
     Active Substance: RASBURICASE
     Dates: start: 20210830, end: 20210830

REACTIONS (2)
  - Immune effector cell-associated neurotoxicity syndrome [Recovered/Resolved]
  - Off label use [Unknown]

NARRATIVE: CASE EVENT DATE: 20210721
